FAERS Safety Report 23597529 (Version 2)
Quarter: 2024Q1

REPORT INFORMATION
  Report Type: Spontaneous
  Country: BE (occurrence: BE)
  Receive Date: 20240305
  Receipt Date: 20240313
  Transmission Date: 20240410
  Serious: Yes (Life-Threatening, Hospitalization)
  Sender: FDA-Public Use
  Company Number: BE-STADA-206718

PATIENT
  Age: 7 Decade
  Sex: Male

DRUGS (3)
  1. MYCOPHENOLATE MOFETIL [Suspect]
     Active Substance: MYCOPHENOLATE MOFETIL
     Indication: Immunosuppressant drug therapy
     Dosage: 1 GRAM, QD
     Route: 065
  2. EVEROLIMUS [Suspect]
     Active Substance: EVEROLIMUS
     Indication: Immunosuppressant drug therapy
     Dosage: UNK
     Route: 065
  3. HYDROXYCHLOROQUINE [Suspect]
     Active Substance: HYDROXYCHLOROQUINE
     Indication: COVID-19
     Dosage: 400 MILLIGRAM, BID (ON DAY 1, EVERY 0.5 DAY)
     Route: 065

REACTIONS (7)
  - Hypercapnia [Recovered/Resolved]
  - COVID-19 [Recovered/Resolved]
  - Neurological decompensation [Recovered/Resolved]
  - Confusional state [Recovered/Resolved]
  - Bacterial infection [Unknown]
  - Pneumonia [Unknown]
  - Off label use [Unknown]
